FAERS Safety Report 8300455-6 (Version None)
Quarter: 2012Q2

REPORT INFORMATION
  Report Type: 
  Country: None (occurrence: None)
  Receive Date: 20120420
  Receipt Date: 20120406
  Transmission Date: 20120825
  Serious: Yes (Hospitalization)
  Sender: FDA-Public Use
  Company Number: CA-MYLANLABS-2012S1007484

PATIENT
  Sex: Male
  Weight: 4 kg

DRUGS (3)
  1. PROPOFOL [Suspect]
     Route: 042
  2. SODIUM CHLORIDE [Concomitant]
  3. ULTIVA [Suspect]
     Route: 042

REACTIONS (3)
  - RESPIRATORY RATE DECREASED [None]
  - INCORRECT DOSE ADMINISTERED [None]
  - ACCIDENTAL OVERDOSE [None]
